FAERS Safety Report 6262023-X (Version None)
Quarter: 2009Q3

REPORT INFORMATION
  Report Type: 
  Country: None (occurrence: None)
  Receive Date: 20090707
  Receipt Date: 20090707
  Transmission Date: 20100115
  Serious: Yes (Life-Threatening, Hospitalization, Disabling, Other)
  Sender: FDA-Public Use
  Company Number: None

PATIENT
  Age: 27 Year
  Sex: Female
  Weight: 81.6475 kg

DRUGS (1)
  1. MIRENA [Suspect]
     Indication: CONTRACEPTION
     Dosage: 1 VAG
     Route: 067

REACTIONS (13)
  - ABDOMINAL PAIN UPPER [None]
  - CAESAREAN SECTION [None]
  - CRYING [None]
  - DRUG EXPOSURE DURING PREGNANCY [None]
  - ECTOPIC PREGNANCY [None]
  - HAEMORRHAGE [None]
  - LOSS OF CONSCIOUSNESS [None]
  - MENSTRUATION IRREGULAR [None]
  - MUSCLE SPASMS [None]
  - PAIN [None]
  - PREGNANCY WITH CONTRACEPTIVE DEVICE [None]
  - PYREXIA [None]
  - TUBAL RUPTURE [None]
